FAERS Safety Report 18186754 (Version 6)
Quarter: 2021Q3

REPORT INFORMATION
  Report Type: Spontaneous
  Country: US (occurrence: US)
  Receive Date: 20200824
  Receipt Date: 20210916
  Transmission Date: 20211014
  Serious: Yes (Other)
  Sender: FDA-Public Use
  Company Number: US-PFIZER INC-2020322917

PATIENT
  Age: 73 Year
  Sex: Female
  Weight: 104.33 kg

DRUGS (2)
  1. XELJANZ XR [Suspect]
     Active Substance: TOFACITINIB CITRATE
     Dosage: 11 MG
  2. XELJANZ XR [Suspect]
     Active Substance: TOFACITINIB CITRATE
     Dosage: UNK (2 MG IN THE MORNING AND 2 AT NIGHT)

REACTIONS (4)
  - Urinary tract infection [Not Recovered/Not Resolved]
  - Bladder disorder [Unknown]
  - Cystitis [Unknown]
  - Product prescribing error [Unknown]
